FAERS Safety Report 17841369 (Version 1)
Quarter: 2020Q2

REPORT INFORMATION
  Report Type: Spontaneous
  Country: US (occurrence: US)
  Receive Date: 20200529
  Receipt Date: 20200529
  Transmission Date: 20200714
  Serious: Yes (Other)
  Sender: FDA-Public Use
  Company Number: US-FRESENIUS KABI-FK202005306

PATIENT
  Age: 3 Day
  Sex: Male
  Weight: 2.53 kg

DRUGS (44)
  1. HEPARIN SODIUM INJECTION, USP [Suspect]
     Active Substance: HEPARIN SODIUM
     Route: 042
     Dates: start: 20200501
  2. HEPARIN SODIUM INJECTION, USP [Suspect]
     Active Substance: HEPARIN SODIUM
     Route: 042
     Dates: start: 20200508
  3. HEPARIN [Concomitant]
     Active Substance: HEPARIN SODIUM
     Indication: PRODUCT USED FOR UNKNOWN INDICATION
     Route: 042
  4. LORAZEPAM. [Concomitant]
     Active Substance: LORAZEPAM
     Indication: PRODUCT USED FOR UNKNOWN INDICATION
     Route: 042
  5. HEPARIN SODIUM INJECTION, USP [Suspect]
     Active Substance: HEPARIN SODIUM
     Indication: PRODUCT USED FOR UNKNOWN INDICATION
     Route: 042
     Dates: start: 20200428
  6. HEPARIN SODIUM INJECTION, USP [Suspect]
     Active Substance: HEPARIN SODIUM
     Route: 042
     Dates: start: 20200429
  7. HEPARIN SODIUM INJECTION, USP [Suspect]
     Active Substance: HEPARIN SODIUM
     Route: 042
     Dates: start: 20200505
  8. HEPARIN SODIUM INJECTION, USP [Suspect]
     Active Substance: HEPARIN SODIUM
     Route: 042
     Dates: start: 20200430
  9. HEPARIN SODIUM INJECTION, USP [Suspect]
     Active Substance: HEPARIN SODIUM
     Route: 042
     Dates: start: 20200502
  10. HEPARIN SODIUM, PORCINE [Suspect]
     Active Substance: HEPARIN SODIUM
     Route: 050
     Dates: start: 20200506
  11. HEPARIN SODIUM INJECTION, USP [Suspect]
     Active Substance: HEPARIN SODIUM
     Route: 042
     Dates: start: 20200503
  12. HEPARIN SODIUM INJECTION, USP [Suspect]
     Active Substance: HEPARIN SODIUM
     Route: 042
     Dates: start: 20200506
  13. HEPARIN SODIUM INJECTION, USP [Suspect]
     Active Substance: HEPARIN SODIUM
     Route: 042
     Dates: start: 20200510
  14. HEPARIN SODIUM, PORCINE [Suspect]
     Active Substance: HEPARIN SODIUM
     Route: 050
     Dates: start: 20200507
  15. CAFFEINE. [Concomitant]
     Active Substance: CAFFEINE
     Indication: PRODUCT USED FOR UNKNOWN INDICATION
     Route: 042
  16. CEFEPIME [Concomitant]
     Active Substance: CEFEPIME HYDROCHLORIDE
     Indication: PRODUCT USED FOR UNKNOWN INDICATION
     Route: 042
     Dates: end: 20200511
  17. HEPARIN SODIUM INJECTION, USP [Suspect]
     Active Substance: HEPARIN SODIUM
     Route: 042
     Dates: start: 20200507
  18. HEPARIN SODIUM, PORCINE [Suspect]
     Active Substance: HEPARIN SODIUM
     Route: 050
     Dates: start: 20200506
  19. HEPARIN SODIUM, PORCINE [Suspect]
     Active Substance: HEPARIN SODIUM
     Route: 050
     Dates: start: 20200506
  20. HEPARIN SODIUM, PORCINE [Suspect]
     Active Substance: HEPARIN SODIUM
     Route: 050
     Dates: start: 20200508
  21. DEXAMETHASONE. [Concomitant]
     Active Substance: DEXAMETHASONE
     Indication: PRODUCT USED FOR UNKNOWN INDICATION
     Route: 042
  22. VANCOMYCIN [Concomitant]
     Active Substance: VANCOMYCIN
     Indication: PRODUCT USED FOR UNKNOWN INDICATION
     Route: 042
  23. HEPARIN SODIUM INJECTION, USP [Suspect]
     Active Substance: HEPARIN SODIUM
     Route: 042
     Dates: start: 20200511
  24. HEPARIN SODIUM, PORCINE [Suspect]
     Active Substance: HEPARIN SODIUM
     Route: 050
     Dates: start: 20200507
  25. HEPARIN SODIUM, PORCINE [Suspect]
     Active Substance: HEPARIN SODIUM
     Route: 050
     Dates: start: 20200508
  26. HEPARIN SODIUM, PORCINE [Suspect]
     Active Substance: HEPARIN SODIUM
     Route: 050
     Dates: start: 20200508
  27. HEPARIN SODIUM, PORCINE [Suspect]
     Active Substance: HEPARIN SODIUM
     Route: 050
     Dates: start: 20200508
  28. HEPARIN SODIUM, PORCINE [Suspect]
     Active Substance: HEPARIN SODIUM
     Route: 050
     Dates: start: 20200509
  29. SODIUM ACETATE. [Concomitant]
     Active Substance: SODIUM ACETATE
     Indication: PRODUCT USED FOR UNKNOWN INDICATION
     Route: 042
  30. FENTANYL. [Concomitant]
     Active Substance: FENTANYL
     Indication: PRODUCT USED FOR UNKNOWN INDICATION
     Route: 042
  31. LEVOSALBUTAMOL HYDROCHLORIDE [Concomitant]
     Active Substance: LEVALBUTEROL HYDROCHLORIDE
     Indication: PRODUCT USED FOR UNKNOWN INDICATION
     Route: 042
  32. HEPARIN SODIUM INJECTION, USP [Suspect]
     Active Substance: HEPARIN SODIUM
     Route: 042
     Dates: start: 20200504
  33. HEPARIN SODIUM INJECTION, USP [Suspect]
     Active Substance: HEPARIN SODIUM
     Route: 042
     Dates: start: 20200509
  34. HEPARIN SODIUM, PORCINE [Suspect]
     Active Substance: HEPARIN SODIUM
     Indication: PRODUCT USED FOR UNKNOWN INDICATION
     Route: 050
     Dates: start: 20200501
  35. HEPARIN SODIUM, PORCINE [Suspect]
     Active Substance: HEPARIN SODIUM
     Route: 050
     Dates: start: 20200501
  36. HEPARIN SODIUM, PORCINE [Suspect]
     Active Substance: HEPARIN SODIUM
     Route: 050
     Dates: start: 20200501
  37. HEPARIN SODIUM, PORCINE [Suspect]
     Active Substance: HEPARIN SODIUM
     Route: 050
     Dates: start: 20200507
  38. HEPARIN SODIUM, PORCINE [Suspect]
     Active Substance: HEPARIN SODIUM
     Route: 050
     Dates: start: 20200507
  39. VITAMINS NOS/MINERALS NOS/AMINO ACIDS NOS/CARBOHYDRATES NOS [Concomitant]
     Indication: PRODUCT USED FOR UNKNOWN INDICATION
     Route: 065
  40. PHENOBARBITAL. [Concomitant]
     Active Substance: PHENOBARBITAL
     Indication: PRODUCT USED FOR UNKNOWN INDICATION
     Route: 042
  41. HEPARIN SODIUM INJECTION, USP [Suspect]
     Active Substance: HEPARIN SODIUM
     Route: 042
     Dates: start: 20200429
  42. HEPARIN SODIUM INJECTION, USP [Suspect]
     Active Substance: HEPARIN SODIUM
     Route: 042
     Dates: start: 20200511
  43. HEPARIN SODIUM, PORCINE [Suspect]
     Active Substance: HEPARIN SODIUM
     Route: 050
     Dates: start: 20200509
  44. FLUCONAZOLE. [Concomitant]
     Active Substance: FLUCONAZOLE
     Indication: PRODUCT USED FOR UNKNOWN INDICATION
     Route: 042

REACTIONS (1)
  - Thrombosis [Unknown]

NARRATIVE: CASE EVENT DATE: 202005
